FAERS Safety Report 9242588 (Version 6)
Quarter: 2014Q2

REPORT INFORMATION
  Report Type: Spontaneous
  Country: US (occurrence: US)
  Receive Date: 20130419
  Receipt Date: 20140418
  Transmission Date: 20141212
  Serious: Yes (Hospitalization)
  Sender: FDA-Public Use
  Company Number: US-GLAXOSMITHKLINE-A0843229A

PATIENT
  Sex: Male

DRUGS (1)
  1. ROSIGLITAZONE MALEATE [Suspect]
     Indication: DIABETES MELLITUS
     Dosage: 4MG TWICE PER DAY
     Route: 048
     Dates: start: 20060928, end: 20100331

REACTIONS (9)
  - Myocardial infarction [Not Recovered/Not Resolved]
  - Cardiac failure [Unknown]
  - Acute coronary syndrome [Unknown]
  - Transient ischaemic attack [Unknown]
  - Angina pectoris [Unknown]
  - Arteriosclerosis [Unknown]
  - Hypertension [Unknown]
  - Peripheral vascular disorder [Unknown]
  - Systolic dysfunction [Unknown]
